FAERS Safety Report 13652525 (Version 1)
Quarter: 2017Q2

REPORT INFORMATION
  Report Type: Spontaneous
  Country: US (occurrence: US)
  Receive Date: 20170614
  Receipt Date: 20170614
  Transmission Date: 20170830
  Serious: No
  Sender: FDA-Public Use
  Company Number: US-ROCHE-1338624

PATIENT
  Age: 92 Year
  Sex: Female

DRUGS (1)
  1. XELODA [Suspect]
     Active Substance: CAPECITABINE
     Indication: RECTAL CANCER
     Dosage: 500 MG; 3 TABS, 7 DAYS ON, 7 DAYS OFF
     Route: 048
     Dates: start: 20130724

REACTIONS (6)
  - Diarrhoea [Not Recovered/Not Resolved]
  - Alopecia [Unknown]
  - Mood swings [Unknown]
  - Decreased appetite [Unknown]
  - Weight decreased [Unknown]
  - Alopecia [Not Recovered/Not Resolved]

NARRATIVE: CASE EVENT DATE: 20140121
